FAERS Safety Report 4697240-3 (Version None)
Quarter: 2005Q2

REPORT INFORMATION
  Report Type: 
  Country: None (occurrence: None)
  Receive Date: 20050622
  Receipt Date: 20050617
  Transmission Date: 20051028
  Serious: Yes (Hospitalization)
  Sender: FDA-Public Use
  Company Number: GB-SANOFI-SYNTHELABO-A01200504241

PATIENT
  Age: 67 Year
  Sex: Male
  Weight: 72.2 kg

DRUGS (8)
  1. ELOXATIN [Suspect]
     Indication: RECTAL CANCER
     Dosage: 240 MG 3 WEEKLY
     Route: 042
     Dates: start: 20050120, end: 20050120
  2. ELOXATIN [Suspect]
     Dosage: 240 MG 3 WEEKLY
     Route: 042
     Dates: start: 20050211, end: 20050211
  3. XELODA [Suspect]
     Indication: RECTAL CANCER
     Route: 048
     Dates: start: 20050120, end: 20050120
  4. XELODA [Suspect]
     Route: 048
     Dates: start: 20050211, end: 20050211
  5. XELODA [Suspect]
     Route: 048
     Dates: start: 20050221, end: 20050221
  6. DIAZEPAM [Concomitant]
     Indication: ANXIETY
     Route: 048
  7. CITALOPRAM [Concomitant]
     Route: 048
  8. SEVEN SEAS TONIC [Concomitant]

REACTIONS (4)
  - ABDOMINAL DISTENSION [None]
  - DIARRHOEA [None]
  - INTESTINAL PERFORATION [None]
  - PAIN [None]
